FAERS Safety Report 17226584 (Version 2)
Quarter: 2020Q1

REPORT INFORMATION
  Report Type: Report from Study
  Country: US (occurrence: US)
  Receive Date: 20200102
  Receipt Date: 20200120
  Transmission Date: 20200409
  Serious: Yes (Death, Hospitalization, Other)
  Sender: FDA-Public Use
  Company Number: US-BRISTOL-MYERS SQUIBB COMPANY-BMS-2019-125256

PATIENT
  Age: 70 Year
  Sex: Female

DRUGS (5)
  1. GVAX [Suspect]
     Active Substance: INVESTIGATIONAL PRODUCT
     Indication: PANCREATIC CARCINOMA METASTATIC
     Dosage: 5 X 10E8 CELLS
     Route: 065
     Dates: start: 20191022, end: 20191111
  2. CRS-207 [Suspect]
     Active Substance: INVESTIGATIONAL PRODUCT
     Indication: PANCREATIC CARCINOMA METASTATIC
     Dosage: 1 X 10E9 CFU
     Route: 065
     Dates: start: 20191022, end: 20191111
  3. IPILIMUMAB [Suspect]
     Active Substance: IPILIMUMAB
     Indication: PANCREATIC CARCINOMA METASTATIC
     Dosage: 1 MILLIGRAM/KILOGRAM
     Route: 065
     Dates: start: 20191022, end: 20191111
  4. CYCLOPHOSPHAMIDE. [Suspect]
     Active Substance: CYCLOPHOSPHAMIDE
     Indication: PANCREATIC CARCINOMA METASTATIC
     Dosage: 200 MILLIGRAM/SQ. METER
     Route: 065
     Dates: start: 20191022, end: 20191111
  5. NIVOLUMAB [Suspect]
     Active Substance: NIVOLUMAB
     Indication: PANCREATIC CARCINOMA METASTATIC
     Dosage: 360 MILLIGRAM
     Route: 065
     Dates: start: 20191022, end: 20191111

REACTIONS (2)
  - Subdural haematoma [Fatal]
  - Syncope [Not Recovered/Not Resolved]

NARRATIVE: CASE EVENT DATE: 20191228
